FAERS Safety Report 7148788-3 (Version None)
Quarter: 2010Q4

REPORT INFORMATION
  Report Type: 
  Country: None (occurrence: None)
  Receive Date: 20101209
  Receipt Date: 20101125
  Transmission Date: 20110411
  Serious: Yes (Hospitalization)
  Sender: FDA-Public Use
  Company Number: PHHY2010ZA52902

PATIENT
  Sex: Female
  Weight: 65 kg

DRUGS (9)
  1. FEMARA [Suspect]
     Indication: BREAST CANCER
     Dosage: 2.5 MG DAILY
     Route: 048
     Dates: start: 20090801, end: 20101012
  2. ELTROXIN [Concomitant]
     Dosage: UNK
  3. DRUG THERAPY NOS [Concomitant]
     Indication: BLOOD PRESSURE ABNORMAL
  4. LASIX [Concomitant]
  5. AMLOC [Concomitant]
  6. CONCOR [Concomitant]
  7. ESPIRIDE [Concomitant]
  8. CITALOPRAM [Concomitant]
  9. STILPANE CAPSULE [Concomitant]

REACTIONS (10)
  - ALOPECIA [None]
  - ARTHRALGIA [None]
  - BRONCHITIS [None]
  - DEPRESSION [None]
  - FEELING ABNORMAL [None]
  - HEADACHE [None]
  - HOT FLUSH [None]
  - MALAISE [None]
  - MYALGIA [None]
  - NAUSEA [None]
